FAERS Safety Report 5284054-9 (Version None)
Quarter: 2007Q1

REPORT INFORMATION
  Report Type: 
  Country: None (occurrence: None)
  Receive Date: 20070327
  Receipt Date: 20070312
  Transmission Date: 20070707
  Serious: Yes (Death)
  Sender: FDA-Public Use
  Company Number: 8022378

PATIENT
  Age: 80 Year
  Sex: Female
  Weight: 75 kg

DRUGS (4)
  1. KEPPRA [Suspect]
     Indication: EPILEPSY
     Dosage: 250 MG /D PO
     Route: 048
     Dates: start: 20060216, end: 20060227
  2. KEPPRA [Suspect]
     Indication: EPILEPSY
     Dosage: 1 G /D PO
     Route: 048
     Dates: start: 20060228
  3. CARBAMAZEPINE [Concomitant]
  4. ASPIRIN [Concomitant]

REACTIONS (2)
  - MALIGNANT NEOPLASM PROGRESSION [None]
  - WEIGHT INCREASED [None]
